FAERS Safety Report 22748190 (Version 3)
Quarter: 2023Q4

REPORT INFORMATION
  Report Type: Spontaneous
  Country: US (occurrence: US)
  Receive Date: 20230725
  Receipt Date: 20231008
  Transmission Date: 20240110
  Serious: Yes (Hospitalization, Other)
  Sender: FDA-Public Use
  Company Number: US-BoehringerIngelheim-2023-BI-251349

PATIENT
  Age: 63 Year
  Sex: Female

DRUGS (4)
  1. OFEV [Suspect]
     Active Substance: NINTEDANIB
     Indication: Pulmonary fibrosis
  2. OFEV [Suspect]
     Active Substance: NINTEDANIB
     Indication: Lung disorder
     Dates: start: 202303
  3. OMEPRAZOLE [Concomitant]
     Active Substance: OMEPRAZOLE
     Indication: Gastrooesophageal reflux disease
  4. MINERALS\VITAMINS [Concomitant]
     Active Substance: MINERALS\VITAMINS
     Indication: Product used for unknown indication

REACTIONS (8)
  - Cholelithiasis [Recovered/Resolved]
  - Cholecystectomy [Recovered/Resolved]
  - Fall [Recovering/Resolving]
  - Contusion [Recovering/Resolving]
  - Fall [Unknown]
  - Ligament rupture [Recovering/Resolving]
  - Somnolence [Not Recovered/Not Resolved]
  - Diarrhoea [Not Recovered/Not Resolved]

NARRATIVE: CASE EVENT DATE: 20200101
